FAERS Safety Report 16703106 (Version 3)
Quarter: 2020Q4

REPORT INFORMATION
  Report Type: Report from Study
  Country: JP (occurrence: JP)
  Receive Date: 20190814
  Receipt Date: 20201216
  Transmission Date: 20210113
  Serious: Yes (Hospitalization)
  Sender: FDA-Public Use
  Company Number: JP-JNJFOC-20190813110

PATIENT
  Age: 42 Year
  Sex: Female
  Weight: 53 kg

DRUGS (12)
  1. SIMPONI [Suspect]
     Active Substance: GOLIMUMAB
     Indication: COLITIS ULCERATIVE
     Route: 058
     Dates: start: 20180424, end: 20180424
  2. PREDONINE [Concomitant]
     Active Substance: PREDNISOLONE
     Dates: start: 20180523, end: 20180605
  3. PREDONINE [Concomitant]
     Active Substance: PREDNISOLONE
     Dates: start: 20180424, end: 20180510
  4. PENTASA [Concomitant]
     Active Substance: MESALAMINE
     Indication: COLITIS ULCERATIVE
     Dosage: GRANULATED POWDER
     Route: 048
     Dates: start: 20190731
  5. SIMPONI [Suspect]
     Active Substance: GOLIMUMAB
     Route: 058
     Dates: start: 20180605, end: 20180605
  6. SIMPONI [Suspect]
     Active Substance: GOLIMUMAB
     Route: 058
     Dates: start: 20180703, end: 20180703
  7. SIMPONI [Suspect]
     Active Substance: GOLIMUMAB
     Route: 058
     Dates: start: 20180731, end: 20180731
  8. PENTASA [Concomitant]
     Active Substance: MESALAMINE
     Dosage: GRANULATED POWDER
     Route: 054
     Dates: start: 20190731
  9. PREDONINE [Concomitant]
     Active Substance: PREDNISOLONE
     Indication: COLITIS ULCERATIVE
     Dates: start: 20180417, end: 20180423
  10. PREDONINE [Concomitant]
     Active Substance: PREDNISOLONE
     Dosage: 7.5 - 4MG PER DAY
     Dates: start: 20180606, end: 20190731
  11. SIMPONI [Suspect]
     Active Substance: GOLIMUMAB
     Route: 058
     Dates: start: 20180508, end: 20180508
  12. PREDONINE [Concomitant]
     Active Substance: PREDNISOLONE
     Dates: start: 20180511, end: 20180522

REACTIONS (1)
  - Breast cancer [Recovering/Resolving]

NARRATIVE: CASE EVENT DATE: 201806
